FAERS Safety Report 5376663-3 (Version None)
Quarter: 2007Q2

REPORT INFORMATION
  Report Type: 
  Country: None (occurrence: None)
  Receive Date: 20070629
  Receipt Date: 20070614
  Transmission Date: 20071010
  Serious: Yes (Other)
  Sender: FDA-Public Use
  Company Number: 2007RR-08113

PATIENT
  Sex: Female

DRUGS (4)
  1. ACETAMINOPHEN [Suspect]
  2. MDMA (METHYLENEDIOXYMETHAMPHETAMINE) [Suspect]
  3. PAROXETINE HYDROCHLORIDE [Suspect]
     Dosage: QD
     Dates: start: 19960217, end: 19970714
  4. VALIUM [Suspect]

REACTIONS (12)
  - AGGRESSION [None]
  - DEPRESSIVE SYMPTOM [None]
  - DIZZINESS [None]
  - DRUG ABUSER [None]
  - DRUG WITHDRAWAL SYNDROME [None]
  - HYPERHIDROSIS [None]
  - LETHARGY [None]
  - MULTIPLE DRUG OVERDOSE [None]
  - NIGHTMARE [None]
  - POISONING DELIBERATE [None]
  - SLEEP DISORDER [None]
  - SUICIDE ATTEMPT [None]
